FAERS Safety Report 9230261 (Version 1)
Quarter: 2013Q2

REPORT INFORMATION
  Report Type: Spontaneous
  Country: US (occurrence: None)
  Receive Date: 20130411
  Receipt Date: 20130411
  Transmission Date: 20140414
  Serious: Yes (Disabling)
  Sender: FDA-Public Use
  Company Number: 2013AP004153

PATIENT
  Age: 70 Year
  Sex: Female

DRUGS (4)
  1. ALENDRONIC ACID [Suspect]
     Dates: start: 20121203
  2. CALCIUM CARBONATE (CALCIUM CARBONATE) [Concomitant]
  3. OMEPRAZOLE (OMEPRAZOLE) [Concomitant]
  4. PARACETAMOL (PARACETAMOL) [Concomitant]

REACTIONS (2)
  - X-ray of pelvis and hip abnormal [None]
  - Osteonecrosis [None]
